FAERS Safety Report 11778467 (Version 1)
Quarter: 2015Q4

REPORT INFORMATION
  Report Type: Spontaneous
  Country: US (occurrence: None)
  Receive Date: 20151125
  Receipt Date: 20151125
  Transmission Date: 20160304
  Serious: Yes (Hospitalization, Other)
  Sender: FDA-Public Use
  Company Number: US-MDT-ADR-2015-02237

PATIENT
  Age: 53 Year
  Sex: Male

DRUGS (1)
  1. BACLOFEN INTRATHECAL 2,500MCG/ML [Suspect]
     Active Substance: BACLOFEN
     Indication: MUSCLE SPASTICITY
     Dosage: 769.9MCG/DAY

REACTIONS (4)
  - Cyst [None]
  - Fibrosis [None]
  - Overdose [None]
  - Muscle spasticity [None]
